FAERS Safety Report 8041935-0 (Version None)
Quarter: 2012Q1

REPORT INFORMATION
  Report Type: 
  Country: None (occurrence: None)
  Receive Date: 20120112
  Receipt Date: 20120105
  Transmission Date: 20120608
  Serious: Yes (Death, Other)
  Sender: FDA-Public Use
  Company Number: PHHY2012NL001333

PATIENT
  Age: 29 Year
  Sex: Female

DRUGS (2)
  1. INDIUM (111 IN) PENTETREOTIDE [Suspect]
     Indication: HYPOGLYCAEMIA
     Dosage: 9 CYCLES WITH TOTAL DOSAGE OF 92.8 GBQ.
  2. OCTREOTIDE ACETATE [Suspect]
     Indication: INSULINOMA
     Dosage: UNK UKN, UNK
     Route: 058

REACTIONS (8)
  - GENERAL PHYSICAL HEALTH DETERIORATION [None]
  - ANAEMIA [None]
  - NEOPLASM MALIGNANT [None]
  - LEUKOPENIA [None]
  - ASCITES [None]
  - HYPOGLYCAEMIA [None]
  - THROMBOCYTOPENIA [None]
  - HYPERGLYCAEMIA [None]
